FAERS Safety Report 8852980 (Version 1)
Quarter: 2012Q4

REPORT INFORMATION
  Report Type: 
  Country: FR (occurrence: FR)
  Receive Date: 20121022
  Receipt Date: 20121022
  Transmission Date: 20130627
  Serious: Yes (Other)
  Sender: FDA-Public Use
  Company Number: PHHY2012FR092166

PATIENT
  Age: 17 Year
  Sex: Female

DRUGS (4)
  1. ITRACONAZOLE [Suspect]
     Indication: CYSTIC FIBROSIS
  2. AZITHROMYCIN [Interacting]
     Indication: CYSTIC FIBROSIS
  3. METHYLPREDNISOLONE [Interacting]
     Indication: CYSTIC FIBROSIS
     Route: 042
  4. SALBUTAMOL [Concomitant]

REACTIONS (3)
  - Bradycardia [Recovering/Resolving]
  - Hypertension [Recovering/Resolving]
  - Drug interaction [Unknown]
